FAERS Safety Report 8509212 (Version 2)
Quarter: 2012Q4

REPORT INFORMATION
  Report Type: 
  Country: GB (occurrence: GB)
  Receive Date: 20120412
  Receipt Date: 20121205
  Transmission Date: 20130627
  Serious: Yes (Hospitalization)
  Sender: FDA-Public Use
  Company Number: GB-ABBOTT-12P-167-0923104-00

PATIENT
  Age: 94 Year
  Sex: Female

DRUGS (10)
  1. KLARICID [Suspect]
     Indication: PNEUMONIA
     Route: 042
     Dates: start: 20120206, end: 20120207
  2. AMOXICILLIN\CLAVULANATE POTASSIUM [Suspect]
     Indication: PNEUMONIA
     Route: 042
     Dates: start: 20120203, end: 20120212
  3. DALTEPARIN [Concomitant]
     Indication: THROMBOSIS PROPHYLAXIS
     Route: 058
     Dates: start: 20120203, end: 20120207
  4. LANSOPRAZOLE [Concomitant]
     Indication: GASTROINTESTINAL DISORDER
     Route: 048
  5. FOLIC ACID [Concomitant]
     Indication: FOLATE DEFICIENCY
     Route: 048
  6. OLANZAPINE [Concomitant]
     Indication: BIPOLAR I DISORDER
     Dosage: 10mg in morning and 5mg at night
     Route: 048
  7. ASPIRIN [Concomitant]
     Indication: TRANSIENT ISCHAEMIC ATTACK
     Route: 048
  8. DIPYRIDAMOLE [Concomitant]
     Indication: TRANSIENT ISCHAEMIC ATTACK
     Route: 048
  9. PRAVASTATIN [Concomitant]
     Indication: BLOOD CHOLESTEROL INCREASED
     Dosage: long term, at night
     Route: 048
  10. AMLODIPINE [Concomitant]
     Indication: HYPERTENSION
     Route: 048

REACTIONS (3)
  - Hepatitis [Recovering/Resolving]
  - Alanine aminotransferase increased [Recovering/Resolving]
  - Blood alkaline phosphatase increased [Recovering/Resolving]
